FAERS Safety Report 10076395 (Version 2)
Quarter: 2014Q2

REPORT INFORMATION
  Report Type: Spontaneous
  Country: US (occurrence: US)
  Receive Date: 20140414
  Receipt Date: 20140430
  Transmission Date: 20141212
  Serious: No
  Sender: FDA-Public Use
  Company Number: US-PFIZER INC-2014103907

PATIENT
  Age: 56 Year
  Sex: Female
  Weight: 104.76 kg

DRUGS (1)
  1. LYRICA [Suspect]
     Indication: FIBROMYALGIA
     Dosage: 150 MG, 2X/DAY
     Dates: end: 201403

REACTIONS (3)
  - Pain [Recovering/Resolving]
  - Emotional disorder [Recovering/Resolving]
  - Crying [Recovering/Resolving]
